FAERS Safety Report 5808423-0 (Version None)
Quarter: 2008Q3

REPORT INFORMATION
  Report Type: 
  Country: None (occurrence: None)
  Receive Date: 20080714
  Receipt Date: 20080703
  Transmission Date: 20090109
  Serious: Yes (Hospitalization)
  Sender: FDA-Public Use
  Company Number: FR-JNJFOC-20080606095

PATIENT
  Sex: Male
  Weight: 79 kg

DRUGS (9)
  1. TMC125 [Suspect]
     Route: 048
  2. TMC125 [Suspect]
     Indication: HIV INFECTION
     Route: 048
  3. PREZISTA [Suspect]
     Indication: HIV INFECTION
     Route: 048
  4. NORVIR [Suspect]
     Indication: HIV INFECTION
  5. VIREAD [Suspect]
     Indication: HIV INFECTION
  6. KIVEXA [Suspect]
     Indication: HIV INFECTION
  7. RALTEGRAVIR [Suspect]
     Indication: HIV INFECTION
  8. SKENAN [Concomitant]
     Indication: NEUROPATHY PERIPHERAL
  9. RIVOTRIL [Concomitant]
     Indication: NEUROPATHY PERIPHERAL

REACTIONS (1)
  - LOWER RESPIRATORY TRACT INFECTION BACTERIAL [None]
